FAERS Safety Report 8223723-5 (Version None)
Quarter: 2012Q1

REPORT INFORMATION
  Report Type: 
  Country: None (occurrence: None)
  Receive Date: 20120316
  Receipt Date: 20120302
  Transmission Date: 20120608
  Serious: Yes (Other)
  Sender: FDA-Public Use
  Company Number: THQ2012A01929

PATIENT
  Age: 46 Year
  Sex: Male

DRUGS (6)
  1. LANSOPRAZOLE [Suspect]
     Indication: PRODUCT USED FOR UNKNOWN INDICATION
     Dosage: 30 MG (30 MG,1 IN 1 D) PER ORAL
     Route: 048
     Dates: start: 20111207, end: 20111212
  2. REYATAZ [Suspect]
     Indication: PRODUCT USED FOR UNKNOWN INDICATION
     Dosage: 300 MG (300 MG,1 IN 1 D) PER ORAL
     Route: 048
     Dates: start: 20051228
  3. ABACAVIR [Suspect]
     Indication: ANTIRETROVIRAL THERAPY
     Dosage: 600 MG (600 MG,1 IN 1 D) PER ORAL
     Route: 048
  4. SODIUM ALGINATE [Suspect]
     Indication: PRODUCT USED FOR UNKNOWN INDICATION
  5. RITONAVIR [Suspect]
     Indication: ANTIRETROVIRAL THERAPY
     Dosage: 100 MG (100 MG,1 IN 1 D) PER ORAL
     Route: 048
  6. TENOFOVIR DISOPROXIL FUMARATE [Suspect]
     Indication: ANTIRETROVIRAL THERAPY
     Dosage: 245 MG (245 MG,1 IN 1 D) PER ORAL
     Route: 048

REACTIONS (1)
  - VIRAL LOAD INCREASED [None]
